FAERS Safety Report 19493267 (Version 1)
Quarter: 2021Q3

REPORT INFORMATION
  Report Type: Other
  Country: NZ (occurrence: NZ)
  Receive Date: 20210705
  Receipt Date: 20210705
  Transmission Date: 20211014
  Serious: Yes (Other)
  Sender: FDA-Public Use
  Company Number: NZ-ROCHE-2861565

PATIENT

DRUGS (1)
  1. RITUXIMAB. [Suspect]
     Active Substance: RITUXIMAB
     Indication: IMMUNOSUPPRESSION
     Route: 065

REACTIONS (11)
  - Corneal perforation [Unknown]
  - Intraocular pressure increased [Unknown]
  - Blindness [Unknown]
  - Keratopathy [Unknown]
  - Glaucoma [Unknown]
  - Iris transillumination defect [Unknown]
  - Ulcerative keratitis [Unknown]
  - Corneal scar [Unknown]
  - Neurotrophic keratopathy [Unknown]
  - Ophthalmic herpes zoster [Unknown]
  - Necrotising retinitis [Unknown]
